FAERS Safety Report 6374710-3 (Version None)
Quarter: 2009Q3

REPORT INFORMATION
  Report Type: 
  Country: None (occurrence: None)
  Receive Date: 20090924
  Receipt Date: 20090914
  Transmission Date: 20100115
  Serious: Yes (Disabling)
  Sender: FDA-Public Use
  Company Number: JP-PFIZER INC-2009264740

PATIENT
  Age: 52 Year

DRUGS (8)
  1. AMLODIPINE BESYLATE [Suspect]
     Indication: HYPERTENSION
     Dosage: 2.5 MG, 1X/DAY
     Route: 048
     Dates: start: 20040109, end: 20041027
  2. AMLODIPINE BESYLATE [Suspect]
     Dosage: 5 MG
     Dates: start: 20041028, end: 20090810
  3. MONTELUKAST [Concomitant]
     Dosage: UNK
     Route: 048
     Dates: start: 20060324
  4. FLUTICASONE PROPIONATE [Concomitant]
     Dosage: UNK
     Route: 055
     Dates: start: 20051011
  5. CLARITIN [Concomitant]
     Dosage: UNK
     Route: 048
     Dates: start: 20040930, end: 20050720
  6. SERETIDE [Concomitant]
     Dosage: UNK
     Route: 055
     Dates: start: 20080410
  7. ALLELOCK [Concomitant]
     Dosage: UNK
     Dates: start: 20070302, end: 20070316
  8. THEO-DUR [Concomitant]
     Dosage: UNK
     Route: 048
     Dates: start: 20040109, end: 20040206

REACTIONS (2)
  - DERMATITIS ATOPIC [None]
  - DRUG ERUPTION [None]
